FAERS Safety Report 9444617 (Version 1)
Quarter: 2013Q3

REPORT INFORMATION
  Report Type: Spontaneous
  Country: US (occurrence: US)
  Receive Date: 20130807
  Receipt Date: 20130807
  Transmission Date: 20140515
  Serious: Yes (Hospitalization, Other)
  Sender: FDA-Public Use
  Company Number: US-PFIZER INC-2013210918

PATIENT
  Age: 60 Year
  Sex: Male

DRUGS (2)
  1. CHANTIX [Suspect]
     Indication: SMOKING CESSATION THERAPY
     Dosage: UNK
     Dates: start: 20130409
  2. CHANTIX [Suspect]
     Dosage: UNK

REACTIONS (4)
  - Chest pain [Recovered/Resolved]
  - Myocardial infarction [Unknown]
  - Disorientation [Unknown]
  - Confusional state [Unknown]
